FAERS Safety Report 24903204 (Version 1)
Quarter: 2025Q1

REPORT INFORMATION
  Report Type: Spontaneous
  Country: FR (occurrence: FR)
  Receive Date: 20250130
  Receipt Date: 20250130
  Transmission Date: 20250408
  Serious: Yes (Hospitalization)
  Sender: AUROBINDO
  Company Number: FR-AFSSAPS-RN2025000028

PATIENT
  Age: 79 Year
  Sex: Male

DRUGS (8)
  1. ALFUZOSIN HYDROCHLORIDE [Suspect]
     Active Substance: ALFUZOSIN HYDROCHLORIDE
     Indication: Benign prostatic hyperplasia
     Dosage: 1 DOSAGE FORM, ONCE A DAY
     Route: 048
  2. AMIODARONE [Suspect]
     Active Substance: AMIODARONE
     Indication: Tachycardia
     Dosage: 1 DOSAGE FORM, ONCE A DAY (200 MG EVERY MORNING)
     Route: 048
  3. FESOTERODINE FUMARATE [Suspect]
     Active Substance: FESOTERODINE FUMARATE
     Indication: Urinary incontinence
     Dosage: 1 DOSAGE FORM, ONCE A DAY
     Route: 048
  4. FINASTERIDE [Suspect]
     Active Substance: FINASTERIDE
     Indication: Benign prostatic hyperplasia
     Dosage: 1 DOSAGE FORM, ONCE A DAY (5 MG IN THE MORNING)
     Route: 048
  5. SERTRALINE HYDROCHLORIDE [Suspect]
     Active Substance: SERTRALINE HYDROCHLORIDE
     Indication: Depression
     Dosage: 2 DOSAGE FORM, ONCE A DAY (2 CAPSULES OF 50 MG IN THE MORNING)
     Route: 048
  6. OXAZEPAM [Suspect]
     Active Substance: OXAZEPAM
     Indication: Anxiety
     Route: 048
  7. LOVENOX [Concomitant]
     Active Substance: ENOXAPARIN SODIUM
     Indication: Prophylaxis
     Dosage: 1 DOSAGE FORM, ONCE A DAY
     Route: 042
  8. ACETAMINOPHEN [Concomitant]
     Active Substance: ACETAMINOPHEN
     Indication: Pain
     Route: 048

REACTIONS (1)
  - Fall [Recovered/Resolved with Sequelae]

NARRATIVE: CASE EVENT DATE: 20240319
